FAERS Safety Report 25179714 (Version 2)
Quarter: 2025Q2

REPORT INFORMATION
  Report Type: Report from Study
  Country: JP (occurrence: JP)
  Receive Date: 20250409
  Receipt Date: 20250529
  Transmission Date: 20250717
  Serious: Yes (Other)
  Sender: JOHNSON AND JOHNSON
  Company Number: JP-JNJFOC-20250402954

PATIENT

DRUGS (3)
  1. STELARA [Suspect]
     Active Substance: USTEKINUMAB
     Indication: Takayasu^s arteritis
     Dosage: 1 IN 1 TOTAL
     Route: 058
  2. STELARA [Suspect]
     Active Substance: USTEKINUMAB
     Dosage: WEEK 8, NUMBER OF SEPARATE DOSAGE:1
     Route: 058
  3. STELARA [Suspect]
     Active Substance: USTEKINUMAB
     Indication: Takayasu^s arteritis
     Route: 040

REACTIONS (12)
  - Diabetes mellitus [Unknown]
  - Vascular graft infection [Recovered/Resolved]
  - Angiopathy [Unknown]
  - Musculoskeletal disorder [Unknown]
  - Nervous system disorder [Unknown]
  - Procedural complication [Unknown]
  - Eye disorder [Unknown]
  - Ear disorder [Unknown]
  - Gastrointestinal disorder [Unknown]
  - Ill-defined disorder [Unknown]
  - Infection [Unknown]
  - Off label use [Unknown]
